FAERS Safety Report 18768836 (Version 1)
Quarter: 2021Q1

REPORT INFORMATION
  Report Type: Report from Study
  Country: US (occurrence: US)
  Receive Date: 20210121
  Receipt Date: 20210121
  Transmission Date: 20210419
  Serious: Yes (Other)
  Sender: FDA-Public Use
  Company Number: US-PFIZER INC-2021034425

PATIENT
  Age: 62 Year
  Sex: Male

DRUGS (1)
  1. CARBOPLATIN. [Suspect]
     Active Substance: CARBOPLATIN
     Indication: GLIONEURONAL TUMOUR
     Dosage: 0.2 UG OVER 72 HOURS, TOTAL 1.3 UG

REACTIONS (1)
  - Generalised tonic-clonic seizure [Recovered/Resolved]
